FAERS Safety Report 5380820-X (Version None)
Quarter: 2007Q2

REPORT INFORMATION
  Report Type: 
  Country: None (occurrence: None)
  Receive Date: 20070530
  Receipt Date: 20070222
  Transmission Date: 20071010
  Serious: No
  Sender: FDA-Public Use
  Company Number: 2007PV030530

PATIENT
  Age: 41 Year
  Sex: Female
  Weight: 117.9352 kg

DRUGS (1)
  1. BYETTA [Suspect]
     Indication: INSULIN RESISTANCE
     Dosage: 5 MCG;BID;SC
     Route: 058
     Dates: start: 20070125

REACTIONS (2)
  - NAUSEA [None]
  - WEIGHT DECREASED [None]
